FAERS Safety Report 10570125 (Version 1)
Quarter: 2014Q4

REPORT INFORMATION
  Report Type: Spontaneous
  Country: US (occurrence: None)
  Receive Date: 20141105
  Receipt Date: 20141105
  Transmission Date: 20150529
  Serious: Yes (Other)
  Sender: FDA-Public Use
  Company Number: 2014-US-012396

PATIENT
  Sex: Female

DRUGS (1)
  1. XYREM [Suspect]
     Active Substance: SODIUM OXYBATE
     Indication: NARCOLEPSY
     Route: 048
     Dates: start: 201303, end: 2013

REACTIONS (11)
  - Urine odour abnormal [None]
  - Migraine with aura [None]
  - Cardiac disorder [None]
  - Lung disorder [None]
  - Speech disorder [None]
  - Hemiparesis [None]
  - Blood pressure increased [None]
  - Paranasal sinus discomfort [None]
  - Visual field defect [None]
  - Musculoskeletal disorder [None]
  - Nuclear magnetic resonance imaging abnormal [None]
